FAERS Safety Report 6227426-8 (Version None)
Quarter: 2009Q2

REPORT INFORMATION
  Report Type: 
  Country: None (occurrence: None)
  Receive Date: 20090612
  Receipt Date: 20090602
  Transmission Date: 20091009
  Serious: Yes (Other)
  Sender: FDA-Public Use
  Company Number: PHHY2009BR22059

PATIENT
  Sex: Male
  Weight: 105 kg

DRUGS (4)
  1. EXFORGE [Suspect]
     Indication: HYPERTENSION
     Dosage: 1 TABLET IN MORNING
     Route: 048
     Dates: start: 20080814, end: 20090301
  2. ASPIRIN [Concomitant]
     Indication: CAROTID ARTERY DISEASE
     Dosage: 1 DF, QD
     Route: 048
     Dates: start: 20080101
  3. TAMSULOSIN HYDROCHLORIDE [Concomitant]
     Indication: PROSTATIC DISORDER
     Dosage: 1 DF, QHS
     Route: 048
     Dates: start: 20090201
  4. FLUTICASONE FUROATE [Concomitant]
     Indication: HYPERSENSITIVITY
     Dosage: 1 DROP IN EACH NOSTRIL IN MORNING
     Route: 045
     Dates: start: 20090518

REACTIONS (3)
  - BLOOD PRESSURE INCREASED [None]
  - MICTURITION FREQUENCY DECREASED [None]
  - OEDEMA [None]
